FAERS Safety Report 10714706 (Version 1)
Quarter: 2015Q1

REPORT INFORMATION
  Report Type: Report from Study
  Country: DE (occurrence: DE)
  Receive Date: 20150115
  Receipt Date: 20150115
  Transmission Date: 20150721
  Serious: Yes (Death, Hospitalization)
  Sender: FDA-Public Use
  Company Number: DE-CELGENE-062-C4047-14054502

PATIENT
  Age: 89 Year
  Sex: Male
  Weight: 57.2 kg

DRUGS (17)
  1. TORASEMID [Concomitant]
     Active Substance: TORSEMIDE
     Indication: CORONARY ARTERY DISEASE
     Route: 065
     Dates: start: 2010, end: 20140428
  2. TORASEMID [Concomitant]
     Active Substance: TORSEMIDE
     Route: 065
     Dates: start: 20140605
  3. ACICLOVIR [Concomitant]
     Active Substance: ACYCLOVIR
     Route: 065
     Dates: start: 20140606
  4. CC-4047 [Suspect]
     Active Substance: POMALIDOMIDE
     Indication: PLASMA CELL MYELOMA
     Route: 048
     Dates: start: 20140403, end: 20140429
  5. CC-4047 [Suspect]
     Active Substance: POMALIDOMIDE
     Route: 048
     Dates: start: 20140430, end: 20140516
  6. NEBIVOLOL [Concomitant]
     Active Substance: NEBIVOLOL
     Indication: CORONARY ARTERY DISEASE
     Route: 065
     Dates: start: 201310, end: 20140521
  7. DEXAMETHASONE. [Suspect]
     Active Substance: DEXAMETHASONE
     Indication: PLASMA CELL MYELOMA
     Route: 048
     Dates: start: 20140403, end: 20140429
  8. DEXAMETHASONE. [Suspect]
     Active Substance: DEXAMETHASONE
     Route: 048
     Dates: start: 20140430, end: 20140516
  9. TORASEMID [Concomitant]
     Active Substance: TORSEMIDE
     Route: 065
     Dates: start: 20140603, end: 20140604
  10. CARBIMAZOLE [Concomitant]
     Active Substance: CARBIMAZOLE
     Indication: HYPERTHYROIDISM
     Dosage: 5 MILLIGRAM
     Route: 065
     Dates: start: 2012
  11. NEBIVOLOL [Concomitant]
     Active Substance: NEBIVOLOL
     Dosage: 8 MILLILITER
     Route: 065
     Dates: start: 20140522
  12. TORASEMID [Concomitant]
     Active Substance: TORSEMIDE
     Dosage: 60 MILLILITER
     Route: 065
     Dates: start: 20140522, end: 20140526
  13. AMOXICLAV [Concomitant]
     Active Substance: AMOXICILLIN\CLAVULANIC ACID
     Indication: COUGH
     Dosage: 1500 MILLIGRAM
     Route: 065
     Dates: start: 20140423
  14. ASPIRIN PROTECT [Concomitant]
     Active Substance: ASPIRIN
     Indication: THROMBOSIS PROPHYLAXIS
     Dosage: 100 MILLIGRAM
     Route: 065
     Dates: start: 2010
  15. INSPRA [Concomitant]
     Active Substance: EPLERENONE
     Indication: CORONARY ARTERY DISEASE
     Dosage: 25 MILLIGRAM
     Route: 065
     Dates: start: 201310
  16. TORASEMID [Concomitant]
     Active Substance: TORSEMIDE
     Route: 065
     Dates: start: 20140429, end: 20140521
  17. ACICLOVIR [Concomitant]
     Active Substance: ACYCLOVIR
     Indication: ANTIVIRAL PROPHYLAXIS
     Route: 065
     Dates: start: 201101, end: 20140605

REACTIONS (2)
  - Pneumonitis [Recovering/Resolving]
  - Bronchopneumonia [Fatal]

NARRATIVE: CASE EVENT DATE: 20140514
